FAERS Safety Report 25742605 (Version 1)
Quarter: 2025Q3

REPORT INFORMATION
  Report Type: Spontaneous
  Country: JP (occurrence: JP)
  Receive Date: 20250829
  Receipt Date: 20250829
  Transmission Date: 20251020
  Serious: Yes (Life-Threatening, Other)
  Sender: NOVARTIS
  Company Number: JP-002147023-NVSJ2025JP008686

PATIENT
  Age: 65 Year
  Sex: Female

DRUGS (1)
  1. PAZOPANIB [Suspect]
     Active Substance: PAZOPANIB
     Indication: Phyllodes tumour
     Route: 065

REACTIONS (5)
  - Gastrointestinal perforation [Unknown]
  - Phyllodes tumour [Unknown]
  - Metastases to abdominal cavity [Unknown]
  - Malignant neoplasm progression [Unknown]
  - Off label use [Unknown]
